FAERS Safety Report 7605071-7 (Version None)
Quarter: 2011Q3

REPORT INFORMATION
  Report Type: 
  Country: None (occurrence: None)
  Receive Date: 20110713
  Receipt Date: 20090304
  Transmission Date: 20111222
  Serious: Yes (Death, Other)
  Sender: FDA-Public Use
  Company Number: US-BAYER-200941216NA

PATIENT
  Age: 72 Year
  Sex: Female
  Weight: 70 kg

DRUGS (18)
  1. TRASYLOL [Suspect]
     Indication: MITRAL VALVE REPLACEMENT
     Dosage: 2 AMPOULES
     Route: 042
     Dates: start: 20060508, end: 20060508
  2. LASIX [Concomitant]
     Dosage: UNK
     Dates: start: 20060508
  3. PROTAMINE SULFATE [Concomitant]
     Dosage: UNK
     Dates: start: 20060508
  4. ANCEF [Concomitant]
     Dosage: UNK
     Dates: start: 20060508
  5. TEMAZEPAM [Concomitant]
     Dosage: 15 MG, UNK
     Route: 048
     Dates: start: 20060423
  6. KLOR-CON [Concomitant]
     Dosage: 10 MEQ, UNK
     Route: 048
     Dates: start: 20060427
  7. VERSED [Concomitant]
     Dosage: UNK
     Dates: start: 20060508
  8. ROCEPHIN [Concomitant]
     Dosage: UNK
     Dates: start: 20060508
  9. LOTENSIN [Concomitant]
     Dosage: 5/6.25 UNK
     Route: 048
     Dates: start: 20010507
  10. ARIMIDEX [Concomitant]
     Dosage: UNK
     Route: 048
     Dates: start: 20030811, end: 20060421
  11. RED BLOOD CELLS [Concomitant]
     Dosage: 2 U, UNK
     Route: 042
     Dates: start: 20060508
  12. FENTANYL-100 [Concomitant]
     Dosage: UNK
     Dates: start: 20060508
  13. TRASYLOL [Suspect]
     Indication: BENIGN TUMOUR EXCISION
     Dosage: 1 ML, ONCE, INITIAL TEST DOSE
     Route: 042
     Dates: start: 20060508, end: 20060508
  14. PRAVACHOL [Concomitant]
     Dosage: 20 MG, UNK
     Route: 048
     Dates: start: 20010423
  15. HEPARIN [Concomitant]
     Dosage: UNK
     Dates: start: 20060508
  16. NEURONTIN [Concomitant]
     Dosage: 300 MG, UNK
     Route: 048
     Dates: start: 20010423
  17. LASIX [Concomitant]
     Dosage: 20 MG, UNK
     Route: 048
     Dates: start: 20060427
  18. XALATAN [Concomitant]
     Dosage: 0.005 %, EYE DROPS (BOTH EYES)
     Route: 047
     Dates: start: 20010828

REACTIONS (22)
  - RENAL INJURY [None]
  - STRESS [None]
  - VENTRICULAR TACHYCARDIA [None]
  - LEUKOCYTOSIS [None]
  - FEAR [None]
  - DISSEMINATED INTRAVASCULAR COAGULATION [None]
  - HAEMODIALYSIS [None]
  - ANXIETY [None]
  - PAIN [None]
  - ANOXIA [None]
  - TOXICITY TO VARIOUS AGENTS [None]
  - RENAL FAILURE ACUTE [None]
  - ANHEDONIA [None]
  - MENTAL IMPAIRMENT [None]
  - METABOLIC ACIDOSIS [None]
  - DEATH [None]
  - RENAL IMPAIRMENT [None]
  - EMOTIONAL DISTRESS [None]
  - CARDIAC ARREST [None]
  - RENAL FAILURE [None]
  - UNEVALUABLE EVENT [None]
  - INJURY [None]
